FAERS Safety Report 7312762-4 (Version None)
Quarter: 2011Q1

REPORT INFORMATION
  Report Type: 
  Country: None (occurrence: None)
  Receive Date: 20110224
  Receipt Date: 20110222
  Transmission Date: 20110831
  Serious: Yes (Other)
  Sender: FDA-Public Use
  Company Number: DK-ABBOTT-10P-044-0663537-00

PATIENT
  Sex: Male

DRUGS (10)
  1. DOLOL [Concomitant]
     Indication: PAIN
  2. SIMVASTATIN [Concomitant]
     Indication: HYPERCHOLESTEROLAEMIA
  3. FOLIMET [Concomitant]
     Indication: PRODUCT USED FOR UNKNOWN INDICATION
     Route: 048
  4. CALCIUM [Concomitant]
     Indication: PRODUCT USED FOR UNKNOWN INDICATION
  5. ACETAMINOPHEN [Concomitant]
     Indication: PAIN
  6. LANSOPRAZOLE [Concomitant]
     Indication: HYPERCHLORHYDRIA
  7. HUMIRA [Suspect]
     Indication: PSORIATIC ARTHROPATHY
     Route: 058
     Dates: start: 20100709, end: 20100820
  8. PREDNISOLONE [Concomitant]
     Indication: PAIN
  9. MIRTAZAPIN [Concomitant]
     Indication: DEPRESSION
  10. METHOTREXATE [Concomitant]
     Indication: PRODUCT USED FOR UNKNOWN INDICATION

REACTIONS (2)
  - ARTHRALGIA [None]
  - TOXIC EPIDERMAL NECROLYSIS [None]
